FAERS Safety Report 15996786 (Version 1)
Quarter: 2019Q1

REPORT INFORMATION
  Report Type: Spontaneous
  Country: BR (occurrence: BR)
  Receive Date: 20190222
  Receipt Date: 20190222
  Transmission Date: 20190418
  Serious: Yes (Hospitalization)
  Sender: FDA-Public Use
  Company Number: BR-PURDUE PHARMA-GBR-2019-0064312

PATIENT
  Sex: Male

DRUGS (1)
  1. RESTIVA [Suspect]
     Active Substance: BUPRENORPHINE
     Indication: PAIN
     Dosage: UNK
     Route: 062

REACTIONS (3)
  - Enzyme abnormality [Unknown]
  - Vomiting [Unknown]
  - Nausea [Unknown]
